FAERS Safety Report 6284997-3 (Version None)
Quarter: 2009Q3

REPORT INFORMATION
  Report Type: 
  Country: None (occurrence: None)
  Receive Date: 20090727
  Receipt Date: 20090225
  Transmission Date: 20100115
  Serious: No
  Sender: FDA-Public Use
  Company Number: US-ABBOTT-09P-163-0559740-00

PATIENT
  Sex: Female
  Weight: 62.198 kg

DRUGS (4)
  1. NORVIR [Suspect]
     Indication: HIV INFECTION
     Dates: start: 20080101
  2. APTIVUS [Concomitant]
     Indication: HIV INFECTION
     Dosage: 2 CAPS
  3. TRUVADA [Concomitant]
     Indication: HIV INFECTION
  4. FUZEON [Concomitant]
     Indication: HIV INFECTION
     Route: 058

REACTIONS (1)
  - DRUG SCREEN POSITIVE [None]
